FAERS Safety Report 7318518-0 (Version None)
Quarter: 2011Q1

REPORT INFORMATION
  Report Type: 
  Country: None (occurrence: None)
  Receive Date: 20110217
  Receipt Date: 20110217
  Transmission Date: 20110831
  Serious: Yes (Hospitalization)
  Sender: FDA-Public Use
  Company Number: None

PATIENT
  Age: 59 Year
  Sex: Female
  Weight: 71.68 kg

DRUGS (11)
  1. TRAMADOL HCL [Concomitant]
  2. CYANCOBALMIN [Suspect]
  3. VIVELLE-DOT [Concomitant]
  4. FEXOFENADINE [Concomitant]
  5. DILAUDID [Suspect]
     Indication: PAIN MANAGEMENT
     Dosage: 2 MG PCA PUMP PRN INJ
     Dates: start: 20110131, end: 20110131
  6. DILAUDID [Suspect]
     Indication: INTERVERTEBRAL DISC DISORDER
     Dosage: 2 MG PCA PUMP PRN INJ
     Dates: start: 20110131, end: 20110131
  7. NARATRIPTAN [Concomitant]
  8. ACETAMINOPHEN [Concomitant]
  9. EPIPEN [Concomitant]
  10. ZEGERID [Concomitant]
  11. VITAMIN D [Concomitant]

REACTIONS (2)
  - ABDOMINAL PAIN UPPER [None]
  - BACK PAIN [None]
